FAERS Safety Report 9709376 (Version 1)
Quarter: 2013Q4

REPORT INFORMATION
  Report Type: Report from Study
  Country: CA (occurrence: CA)
  Receive Date: 20131126
  Receipt Date: 20131126
  Transmission Date: 20140711
  Serious: Yes (Death)
  Sender: FDA-Public Use
  Company Number: CA-ROCHE-1307467

PATIENT
  Age: 71 Year
  Sex: Male

DRUGS (7)
  1. XELODA [Suspect]
     Indication: OESOPHAGEAL CARCINOMA
     Route: 048
     Dates: start: 20130715
  2. AMLODIPINE [Concomitant]
  3. RAMIPRIL [Concomitant]
  4. EZETROL [Concomitant]
  5. PANTOLOC [Concomitant]
  6. SULCRATE [Concomitant]
  7. ROSUVASTATIN [Concomitant]

REACTIONS (2)
  - Cerebrovascular accident [Fatal]
  - Off label use [Unknown]
